FAERS Safety Report 7314543-4 (Version None)
Quarter: 2011Q1

REPORT INFORMATION
  Report Type: 
  Country: None (occurrence: None)
  Receive Date: 20110225
  Receipt Date: 20101018
  Transmission Date: 20110831
  Serious: Yes (Other)
  Sender: FDA-Public Use
  Company Number: US-MYLANLABS-2010S1017721

PATIENT
  Age: 16 Year
  Sex: Female
  Weight: 50.35 kg

DRUGS (3)
  1. AMNESTEEM [Suspect]
     Indication: ACNE
     Route: 048
     Dates: start: 20100720, end: 20100920
  2. YASMIN [Concomitant]
  3. FISH OIL [Concomitant]

REACTIONS (1)
  - DIARRHOEA HAEMORRHAGIC [None]
